FAERS Safety Report 5398637-9 (Version None)
Quarter: 2007Q3

REPORT INFORMATION
  Report Type: 
  Country: None (occurrence: None)
  Receive Date: 20070726
  Receipt Date: 20060616
  Transmission Date: 20080115
  Serious: No
  Sender: FDA-Public Use
  Company Number: US-AMGEN-KDL183946

PATIENT
  Sex: Female
  Weight: 90.8 kg

DRUGS (3)
  1. PROCRIT [Suspect]
     Indication: ANAEMIA
     Route: 058
     Dates: start: 20040702
  2. ARANESP [Concomitant]
     Dates: start: 20060214
  3. VENOFER [Concomitant]
     Dates: start: 20040801

REACTIONS (10)
  - ARTHRALGIA [None]
  - BLOOD GLUCOSE DECREASED [None]
  - BONE PAIN [None]
  - CONDITION AGGRAVATED [None]
  - MOBILITY DECREASED [None]
  - MYOGLOBIN BLOOD INCREASED [None]
  - OEDEMA PERIPHERAL [None]
  - PAIN IN EXTREMITY [None]
  - PRURITUS GENERALISED [None]
  - RED BLOOD CELL SEDIMENTATION RATE INCREASED [None]
